FAERS Safety Report 24671097 (Version 2)
Quarter: 2025Q1

REPORT INFORMATION
  Report Type: Report from Study
  Country: US (occurrence: US)
  Receive Date: 20241127
  Receipt Date: 20250308
  Transmission Date: 20250408
  Serious: No
  Sender: TAKEDA
  Company Number: US-TAKEDA-2024TUS118111

PATIENT
  Age: 67 Year
  Sex: Male
  Weight: 67.12 kg

DRUGS (23)
  1. HUMAN IMMUNOGLOBULIN G [Suspect]
     Active Substance: HUMAN IMMUNOGLOBULIN G
     Indication: Myositis
     Dosage: 1000 MILLIGRAM/KILOGRAM, Q3WEEKS
     Dates: start: 20241117
  2. HUMAN IMMUNOGLOBULIN G [Suspect]
     Active Substance: HUMAN IMMUNOGLOBULIN G
  3. OMEPRAZOLE [Concomitant]
     Active Substance: OMEPRAZOLE
  4. SENNA S [Concomitant]
     Active Substance: DOCUSATE SODIUM\SENNOSIDES
  5. PANTOPRAZOLE SODIUM [Concomitant]
     Active Substance: PANTOPRAZOLE SODIUM
  6. Dulcolax [Concomitant]
  7. LACTULOSE [Concomitant]
     Active Substance: LACTULOSE
  8. CALCIUM\CHOLECALCIFEROL [Concomitant]
     Active Substance: CALCIUM\CHOLECALCIFEROL
  9. TYLENOL [Concomitant]
     Active Substance: ACETAMINOPHEN
     Indication: Arthritis
  10. LOVENOX [Concomitant]
     Active Substance: ENOXAPARIN SODIUM
  11. ATOVAQUONE AND PROGUANIL HCL [Concomitant]
     Active Substance: ATOVAQUONE\PROGUANIL HYDROCHLORIDE
  12. METHOTREXATE [Concomitant]
     Active Substance: METHOTREXATE
  13. LANTUS [Concomitant]
     Active Substance: INSULIN GLARGINE
  14. PREDNISONE [Concomitant]
     Active Substance: PREDNISONE
  15. FOLIC ACID [Concomitant]
     Active Substance: FOLIC ACID
  16. FARXIGA [Concomitant]
     Active Substance: DAPAGLIFLOZIN PROPANEDIOL
  17. SODIUM CHLORIDE [Concomitant]
     Active Substance: SODIUM CHLORIDE
  18. METFORMIN [Concomitant]
     Active Substance: METFORMIN HYDROCHLORIDE
  19. EDARBYCLOR [Concomitant]
     Active Substance: AZILSARTAN KAMEDOXOMIL\CHLORTHALIDONE
  20. Insulin and syringes [Concomitant]
  21. AMLODIPINE BESYLATE [Concomitant]
     Active Substance: AMLODIPINE BESYLATE
  22. OZEMPIC [Concomitant]
     Active Substance: SEMAGLUTIDE
  23. Melatonin + L Theanine [Concomitant]

REACTIONS (7)
  - Discomfort [Unknown]
  - Limb discomfort [Unknown]
  - Medical device site bruise [Unknown]
  - Product use in unapproved indication [Unknown]
  - Pain [Unknown]
  - Feeling hot [Unknown]
  - Pruritus [Unknown]

NARRATIVE: CASE EVENT DATE: 20241117
